FAERS Safety Report 18364526 (Version 5)
Quarter: 2023Q1

REPORT INFORMATION
  Report Type: Spontaneous
  Country: US (occurrence: None)
  Receive Date: 20201009
  Receipt Date: 20230117
  Transmission Date: 20230418
  Serious: Yes (Hospitalization, Congenital Anomaly, Other)
  Sender: FDA-Public Use
  Company Number: 2020SF28034

PATIENT
  Age: 445 Month
  Sex: Male

DRUGS (52)
  1. FARXIGA [Suspect]
     Active Substance: DAPAGLIFLOZIN PROPANEDIOL
     Indication: Type 2 diabetes mellitus
     Route: 048
     Dates: start: 20180806, end: 20181025
  2. FARXIGA [Suspect]
     Active Substance: DAPAGLIFLOZIN PROPANEDIOL
     Indication: Weight decreased
     Route: 048
     Dates: start: 20180806, end: 20181025
  3. FARXIGA [Suspect]
     Active Substance: DAPAGLIFLOZIN PROPANEDIOL
     Indication: Blood pressure decreased
     Route: 048
     Dates: start: 20180806, end: 20181025
  4. FARXIGA [Suspect]
     Active Substance: DAPAGLIFLOZIN PROPANEDIOL
     Indication: Type 2 diabetes mellitus
     Route: 048
     Dates: start: 20181025
  5. FARXIGA [Suspect]
     Active Substance: DAPAGLIFLOZIN PROPANEDIOL
     Indication: Weight decreased
     Route: 048
     Dates: start: 20181025
  6. FARXIGA [Suspect]
     Active Substance: DAPAGLIFLOZIN PROPANEDIOL
     Indication: Blood pressure decreased
     Route: 048
     Dates: start: 20181025
  7. FARXIGA [Suspect]
     Active Substance: DAPAGLIFLOZIN PROPANEDIOL
     Indication: Type 2 diabetes mellitus
     Route: 048
     Dates: start: 20181025
  8. FARXIGA [Suspect]
     Active Substance: DAPAGLIFLOZIN PROPANEDIOL
     Indication: Weight decreased
     Route: 048
     Dates: start: 20181025
  9. FARXIGA [Suspect]
     Active Substance: DAPAGLIFLOZIN PROPANEDIOL
     Indication: Blood pressure decreased
     Route: 048
     Dates: start: 20181025
  10. FARXIGA [Suspect]
     Active Substance: DAPAGLIFLOZIN PROPANEDIOL
     Indication: Type 2 diabetes mellitus
     Route: 048
     Dates: start: 20180806
  11. FARXIGA [Suspect]
     Active Substance: DAPAGLIFLOZIN PROPANEDIOL
     Indication: Weight decreased
     Route: 048
     Dates: start: 20180806
  12. FARXIGA [Suspect]
     Active Substance: DAPAGLIFLOZIN PROPANEDIOL
     Indication: Blood pressure decreased
     Route: 048
     Dates: start: 20180806
  13. FARXIGA [Suspect]
     Active Substance: DAPAGLIFLOZIN PROPANEDIOL
     Indication: Type 2 diabetes mellitus
     Route: 048
     Dates: start: 2018
  14. FARXIGA [Suspect]
     Active Substance: DAPAGLIFLOZIN PROPANEDIOL
     Indication: Weight decreased
     Route: 048
     Dates: start: 2018
  15. FARXIGA [Suspect]
     Active Substance: DAPAGLIFLOZIN PROPANEDIOL
     Indication: Blood pressure decreased
     Route: 048
     Dates: start: 2018
  16. ASPIRIN [Concomitant]
     Active Substance: ASPIRIN
     Dates: start: 20170118
  17. ENALAPRIL MALEATE [Concomitant]
     Active Substance: ENALAPRIL MALEATE
     Dates: start: 20161213
  18. GLIPIZIDE [Concomitant]
     Active Substance: GLIPIZIDE
     Dates: start: 20161213
  19. HYDROCHLOROTHIAZIDE [Concomitant]
     Active Substance: HYDROCHLOROTHIAZIDE
     Dates: start: 20161227
  20. METFORMIN HYDROCHLORIDE [Concomitant]
     Active Substance: METFORMIN HYDROCHLORIDE
     Dates: start: 20161213
  21. OMEPRAZOLE [Concomitant]
     Active Substance: OMEPRAZOLE
     Dates: start: 20170118
  22. AMOXICILLIN\CLAVULANATE POTASSIUM [Concomitant]
     Active Substance: AMOXICILLIN\CLAVULANATE POTASSIUM
     Dates: start: 20181025
  23. IBUPROFEN [Concomitant]
     Active Substance: IBUPROFEN
     Dates: start: 20181027
  24. METFORMIN [Concomitant]
     Active Substance: METFORMIN HYDROCHLORIDE
     Dates: start: 20180228
  25. DOXYCYCLINE HYCLATE [Concomitant]
     Active Substance: DOXYCYCLINE HYCLATE
     Dates: start: 20181024
  26. FLUCONAZOLE [Concomitant]
     Active Substance: FLUCONAZOLE
     Dates: start: 20181029
  27. CEFDINIR [Concomitant]
     Active Substance: CEFDINIR
     Dates: start: 20170829
  28. BENZONATATE [Concomitant]
     Active Substance: BENZONATATE
     Dates: start: 20161213
  29. LEVOFLOXACIN [Concomitant]
     Active Substance: LEVOFLOXACIN
     Dates: start: 20170417
  30. PREDNISONE [Concomitant]
     Active Substance: PREDNISONE
     Dates: start: 20170417
  31. AMLODIPINE BESYLATE [Concomitant]
     Active Substance: AMLODIPINE BESYLATE
     Dates: start: 20140424
  32. INVOKANA [Concomitant]
     Active Substance: CANAGLIFLOZIN
     Dates: start: 20140430
  33. FLUTICASONE [Concomitant]
     Active Substance: FLUTICASONE
     Dates: start: 20151213
  34. AZITHROMYCIN [Concomitant]
     Active Substance: AZITHROMYCIN
     Dates: start: 20140304
  35. SIMVASTATIN [Concomitant]
     Active Substance: SIMVASTATIN
     Dates: start: 20140327
  36. CLOTRIMAZOLE/DEXAMETHASONE [Concomitant]
  37. DEXTROSE [Concomitant]
     Active Substance: DEXTROSE
  38. RINGERS SOLUTION [Concomitant]
     Active Substance: CALCIUM CHLORIDE\POTASSIUM CHLORIDE\SODIUM CHLORIDE
  39. NOVOLOG [Concomitant]
     Active Substance: INSULIN ASPART
  40. INVANZ [Concomitant]
     Active Substance: ERTAPENEM SODIUM
  41. NORCO [Concomitant]
     Active Substance: ACETAMINOPHEN\HYDROCODONE BITARTRATE
  42. TYLENOL [Concomitant]
     Active Substance: ACETAMINOPHEN
  43. ZOFRAN [Concomitant]
     Active Substance: ONDANSETRON HYDROCHLORIDE
  44. TRADJENTA [Concomitant]
     Active Substance: LINAGLIPTIN
  45. JANUVIA [Concomitant]
     Active Substance: SITAGLIPTIN PHOSPHATE
  46. LISINOPRIL [Concomitant]
     Active Substance: LISINOPRIL
  47. CANAGLIFLOZIN [Concomitant]
     Active Substance: CANAGLIFLOZIN
  48. ENALAPRIL [Concomitant]
     Active Substance: ENALAPRIL
  49. DIFLUCAN [Concomitant]
     Active Substance: FLUCONAZOLE
  50. TRULICITY [Concomitant]
     Active Substance: DULAGLUTIDE
  51. GLUCOTROL [Concomitant]
     Active Substance: GLIPIZIDE
     Dates: start: 20161213
  52. LANTUS [Concomitant]
     Active Substance: INSULIN GLARGINE
     Dates: start: 20170417

REACTIONS (15)
  - Gangrene [Unknown]
  - Soft tissue necrosis [Unknown]
  - Abscess limb [Unknown]
  - Fournier^s gangrene [Unknown]
  - Cellulitis [Unknown]
  - Subcutaneous abscess [Unknown]
  - Perirectal abscess [Unknown]
  - Sepsis [Unknown]
  - Abscess [Unknown]
  - Urinary tract infection [Unknown]
  - Anal abscess [Unknown]
  - Genital abscess [Unknown]
  - Anal abscess [Unknown]
  - Skin disorder [Unknown]
  - Depression [Unknown]

NARRATIVE: CASE EVENT DATE: 20181001
